FAERS Safety Report 24921085 (Version 1)
Quarter: 2025Q1

REPORT INFORMATION
  Report Type: Spontaneous
  Country: GB (occurrence: GB)
  Receive Date: 20250204
  Receipt Date: 20250204
  Transmission Date: 20250409
  Serious: Yes (Hospitalization)
  Sender: ALKEM
  Company Number: None

PATIENT
  Age: 42 Year
  Sex: Male

DRUGS (10)
  1. GABAPENTIN [Suspect]
     Active Substance: GABAPENTIN
     Indication: Product used for unknown indication
     Dosage: 1 DOSAGE FORM, TID (100 MG CAPSULES ONE TO BE TAKEN THREE TIMES A DAY)
     Route: 065
     Dates: start: 20231206
  2. BUPRENORPHINE [Concomitant]
     Active Substance: BUPRENORPHINE
     Indication: Product used for unknown indication
     Dosage: 2 MILLIGRAM, QD (SUBLINGUAL TABLETS SUGAR FREE 16 MG UNDER THE TONGUE EACH DAY)
     Route: 065
  3. BUPRENORPHINE [Concomitant]
     Active Substance: BUPRENORPHINE
     Route: 065
  4. Capasal Therapeutic shampoo [Concomitant]
     Indication: Product used for unknown indication
     Route: 065
  5. FLUCLOXACILLIN [Concomitant]
     Active Substance: FLUCLOXACILLIN
     Indication: Product used for unknown indication
     Dosage: 500 MILLIGRAM, QID (ONE TO BE TAKEN FOUR TIMES A DAY), CAPSULE
     Route: 065
     Dates: start: 20231219
  6. FLUPENTIXOL [Concomitant]
     Active Substance: FLUPENTIXOL
     Indication: Product used for unknown indication
     Dosage: 100 MILLIGRAM, ONCE IN 2 WEEKS (EVERY 2 WEEKS), (SOLUTION FOR INJECTION AMPOULES)
     Route: 065
  7. FOLIC ACID [Concomitant]
     Active Substance: FOLIC ACID
     Indication: Product used for unknown indication
     Dosage: 5 MILLIGRAM, QD (ONE TO BE TAKEN EACH DAY), TABLET
     Route: 065
     Dates: start: 20231115
  8. KETOCONAZOLE [Concomitant]
     Active Substance: KETOCONAZOLE
     Indication: Product used for unknown indication
     Route: 065
  9. PROCYCLIDINE [Concomitant]
     Active Substance: PROCYCLIDINE
     Indication: Product used for unknown indication
     Dosage: 5 MILLIGRAM, TID (ONE TO BE TAKEN THREE TIMES A DAY), TABLET
     Route: 065
  10. THIAMINE [Concomitant]
     Active Substance: THIAMINE
     Indication: Product used for unknown indication
     Dosage: 100 MILLIGRAM, TID (ONE TO BE TAKEN THREE TIMES A DAY), TABLET
     Route: 065

REACTIONS (1)
  - Somnolence [Recovered/Resolved]
